FAERS Safety Report 9235272 (Version 1)
Quarter: 2013Q2

REPORT INFORMATION
  Report Type: Spontaneous
  Country: US (occurrence: US)
  Receive Date: 20130417
  Receipt Date: 20130417
  Transmission Date: 20140414
  Serious: No
  Sender: FDA-Public Use
  Company Number: US-BIOGENIDEC-2013BI031753

PATIENT
  Age: 48 Year
  Sex: Female

DRUGS (1)
  1. TYSABRI [Suspect]
     Indication: MULTIPLE SCLEROSIS
     Route: 042
     Dates: start: 20130313

REACTIONS (5)
  - Tongue blistering [Not Recovered/Not Resolved]
  - Tongue coated [Not Recovered/Not Resolved]
  - Pain of skin [Not Recovered/Not Resolved]
  - Hyperaesthesia [Recovered/Resolved with Sequelae]
  - Tooth extraction [Recovered/Resolved with Sequelae]
